FAERS Safety Report 8137374-4 (Version None)
Quarter: 2012Q1

REPORT INFORMATION
  Report Type: 
  Country: None (occurrence: None)
  Receive Date: 20120215
  Receipt Date: 20120203
  Transmission Date: 20120608
  Serious: No
  Sender: FDA-Public Use
  Company Number: US-JNJFOC-20110406723

PATIENT
  Sex: Female
  Weight: 90.72 kg

DRUGS (6)
  1. DURAGESIC-100 [Suspect]
     Indication: PRODUCT USED FOR UNKNOWN INDICATION
     Route: 062
  2. FENTANYL-100 [Suspect]
     Indication: FIBROMYALGIA
     Route: 062
  3. FENTANYL-100 [Suspect]
     Indication: ARTHRITIS
     Route: 062
  4. FENTANYL-100 [Suspect]
     Indication: LUMBAR RADICULOPATHY
     Route: 062
  5. FENTANYL-100 [Suspect]
     Indication: KNEE ARTHROPLASTY
     Route: 062
  6. FENTANYL-100 [Suspect]
     Indication: BACK PAIN
     Route: 062

REACTIONS (4)
  - HYPOAESTHESIA ORAL [None]
  - PRODUCT QUALITY ISSUE [None]
  - COLD SWEAT [None]
  - INAPPROPRIATE SCHEDULE OF DRUG ADMINISTRATION [None]
